FAERS Safety Report 7506041-X (Version None)
Quarter: 2011Q2

REPORT INFORMATION
  Report Type: 
  Country: None (occurrence: None)
  Receive Date: 20110526
  Receipt Date: 20110526
  Transmission Date: 20111010
  Serious: Yes (Hospitalization)
  Sender: FDA-Public Use
  Company Number: PHHO2009UA05375

PATIENT
  Age: 72 Year
  Sex: Male

DRUGS (4)
  1. AMBROXOL [Concomitant]
     Dosage: UNK
     Dates: start: 20081119
  2. FORADIL [Suspect]
     Indication: CHRONIC OBSTRUCTIVE PULMONARY DISEASE
     Dosage: 10 UG, BID
     Dates: start: 20081119
  3. ACETYLSALICYLIC ACID SRT [Concomitant]
     Dosage: UNK
     Dates: start: 20081119
  4. DICLOFENAC SODIUM [Suspect]
     Indication: BACK PAIN
     Dosage: 75MG QD
     Route: 030
     Dates: start: 20090401, end: 20090401

REACTIONS (2)
  - NEPHROLITHIASIS [None]
  - RENAL COLIC [None]
